FAERS Safety Report 18924814 (Version 1)
Quarter: 2021Q1

REPORT INFORMATION
  Report Type: Spontaneous
  Country: US (occurrence: US)
  Receive Date: 20210223
  Receipt Date: 20210223
  Transmission Date: 20210420
  Serious: No
  Sender: FDA-Public Use
  Company Number: US-AUROBINDO-AUR-APL-2020-057259

PATIENT
  Age: 77 Year
  Sex: Female
  Weight: 110.22 kg

DRUGS (8)
  1. METHOTREXATE TABLETS USP 2.5MG [Suspect]
     Active Substance: METHOTREXATE
     Dosage: 4 DOSAGE FORM, DAILY
     Route: 048
  2. XELJANZ XR [Suspect]
     Active Substance: TOFACITINIB CITRATE
     Indication: RHEUMATOID ARTHRITIS
     Dosage: 11 MILLIGRAM, ONCE A DAY
     Route: 048
  3. METHOTREXATE TABLETS USP 2.5MG [Suspect]
     Active Substance: METHOTREXATE
     Dosage: 6 DOSAGE FORM, DAILY
     Route: 048
  4. XELJANZ XR [Suspect]
     Active Substance: TOFACITINIB CITRATE
     Dosage: UNK
     Route: 048
  5. HUMIRA [Suspect]
     Active Substance: ADALIMUMAB
     Indication: RHEUMATOID ARTHRITIS
     Dosage: UNK
     Route: 065
  6. ENBREL [Suspect]
     Active Substance: ETANERCEPT
     Indication: RHEUMATOID ARTHRITIS
     Dosage: UNK
     Route: 065
  7. METHOTREXATE TABLETS USP 2.5MG [Suspect]
     Active Substance: METHOTREXATE
     Dosage: 5 DOSAGE FORM, DAILY
     Route: 048
  8. METHOTREXATE TABLETS USP 2.5MG [Suspect]
     Active Substance: METHOTREXATE
     Indication: RHEUMATOID ARTHRITIS
     Dosage: 7 DOSAGE FORM, DAILY
     Route: 048

REACTIONS (5)
  - Body height decreased [Recovered/Resolved]
  - Drug intolerance [Recovered/Resolved]
  - Oral mucosal blistering [Recovered/Resolved]
  - Stomatitis [Recovered/Resolved]
  - Gingival pain [Recovered/Resolved]
